FAERS Safety Report 5510218-2 (Version None)
Quarter: 2007Q4

REPORT INFORMATION
  Report Type: 
  Country: None (occurrence: None)
  Receive Date: 20071108
  Receipt Date: 20071026
  Transmission Date: 20080405
  Serious: Yes (Other)
  Sender: FDA-Public Use
  Company Number: GB-AMGEN-UK250243

PATIENT
  Age: 34 Year
  Sex: Female

DRUGS (3)
  1. ARANESP [Suspect]
     Indication: RENAL FAILURE CHRONIC
  2. EPREX [Suspect]
  3. NEORECORMON [Suspect]

REACTIONS (3)
  - ANAEMIA [None]
  - DRUG SPECIFIC ANTIBODY ABSENT [None]
  - THERAPEUTIC RESPONSE DECREASED [None]
